FAERS Safety Report 15465263 (Version 3)
Quarter: 2019Q3

REPORT INFORMATION
  Report Type: Spontaneous
  Country: US (occurrence: US)
  Receive Date: 20181004
  Receipt Date: 20190815
  Transmission Date: 20191004
  Serious: No
  Sender: FDA-Public Use
  Company Number: US-VIFOR (INTERNATIONAL) INC.-VIT-2018-09718

PATIENT
  Sex: Female

DRUGS (15)
  1. TRAZODONE HYDROCHLORIDE. [Concomitant]
     Active Substance: TRAZODONE HYDROCHLORIDE
  2. DEMADEX [Concomitant]
     Active Substance: TORSEMIDE
  3. ALDACTONE [Concomitant]
     Active Substance: SPIRONOLACTONE
  4. COZAAR [Concomitant]
     Active Substance: LOSARTAN POTASSIUM
  5. PEPCID [Concomitant]
     Active Substance: FAMOTIDINE
  6. VELTASSA [Suspect]
     Active Substance: PATIROMER
     Indication: HYPERKALAEMIA
     Route: 048
     Dates: start: 20180913
  7. ZOCOR [Concomitant]
     Active Substance: SIMVASTATIN
  8. PRESERVISION AREDS 2 [Concomitant]
     Active Substance: MINERALS\VITAMINS
  9. CARDURA [Concomitant]
     Active Substance: DOXAZOSIN MESYLATE
  10. TYLENOL [Concomitant]
     Active Substance: ACETAMINOPHEN
  11. VELTASSA [Suspect]
     Active Substance: PATIROMER
     Dates: start: 2019
  12. ACYCLOVIR. [Concomitant]
     Active Substance: ACYCLOVIR
  13. CORGARD [Concomitant]
     Active Substance: NADOLOL
  14. ULORIC [Concomitant]
     Active Substance: FEBUXOSTAT
  15. BUPROPION HCL [Concomitant]
     Active Substance: BUPROPION HYDROCHLORIDE

REACTIONS (5)
  - Unevaluable event [Recovering/Resolving]
  - Off label use [Unknown]
  - Product physical issue [Not Recovered/Not Resolved]
  - Constipation [Unknown]
  - Product dose omission [Not Recovered/Not Resolved]

NARRATIVE: CASE EVENT DATE: 2018
